FAERS Safety Report 8240489-3 (Version None)
Quarter: 2012Q1

REPORT INFORMATION
  Report Type: 
  Country: None (occurrence: None)
  Receive Date: 20120328
  Receipt Date: 20120326
  Transmission Date: 20120608
  Serious: No
  Sender: FDA-Public Use
  Company Number: US-PFIZER INC-2012078292

PATIENT
  Sex: Female
  Weight: 45.4 kg

DRUGS (1)
  1. RELPAX [Suspect]
     Indication: MIGRAINE
     Dosage: 40MG, AS NEEDED (UP TO 12 TIMES IN A MONTH)
     Route: 048
     Dates: start: 20100101

REACTIONS (1)
  - HEADACHE [None]
